FAERS Safety Report 4866270-0 (Version None)
Quarter: 2005Q4

REPORT INFORMATION
  Report Type: 
  Country: None (occurrence: None)
  Receive Date: 20051221
  Receipt Date: 20051129
  Transmission Date: 20060501
  Serious: Yes (Hospitalization)
  Sender: FDA-Public Use
  Company Number: AE2005-0494

PATIENT
  Age: 16 Year
  Sex: Male

DRUGS (1)
  1. MUCINEX DM (GUAIFENESIN/DEXTROMETHORPHAN HBR) [Suspect]
     Indication: DRUG ABUSER
     Dosage: MG ONCE ORAL
     Route: 048
     Dates: start: 20051104

REACTIONS (2)
  - DYSARTHRIA [None]
  - MOTOR DYSFUNCTION [None]
